FAERS Safety Report 23945775 (Version 1)
Quarter: 2024Q2

REPORT INFORMATION
  Report Type: Other
  Country: CN (occurrence: CN)
  Receive Date: 20240606
  Receipt Date: 20240606
  Transmission Date: 20240716
  Serious: Yes (Other)
  Sender: FDA-Public Use
  Company Number: CN-GE HEALTHCARE-2024CSU006022

PATIENT
  Age: 79 Year
  Sex: Male
  Weight: 55 kg

DRUGS (1)
  1. VISIPAQUE [Suspect]
     Active Substance: IODIXANOL
     Indication: Computerised tomogram thorax
     Dosage: 100 ML, TOTAL
     Route: 041
     Dates: start: 20240527, end: 20240527

REACTIONS (6)
  - Dysphoria [Recovering/Resolving]
  - Tachypnoea [Recovering/Resolving]
  - Urticaria [Recovering/Resolving]
  - Pruritus [Recovering/Resolving]
  - Rash erythematous [Recovering/Resolving]
  - Contrast media allergy [Recovering/Resolving]

NARRATIVE: CASE EVENT DATE: 20240527
